FAERS Safety Report 10084025 (Version 2)
Quarter: 2014Q2

REPORT INFORMATION
  Report Type: Spontaneous
  Country: DZ (occurrence: DZ)
  Receive Date: 20140417
  Receipt Date: 20140417
  Transmission Date: 20141212
  Serious: Yes (Hospitalization, Disabling)
  Sender: FDA-Public Use
  Company Number: DZ-BAYER-2013-118018

PATIENT
  Age: 20 Year
  Sex: Female

DRUGS (1)
  1. JASMINE [Suspect]
     Indication: MENSTRUAL CYCLE MANAGEMENT
     Dosage: UNK
     Route: 048

REACTIONS (5)
  - Cerebrovascular accident [Unknown]
  - Leg amputation [None]
  - Deep vein thrombosis [Not Recovered/Not Resolved]
  - Amnesia [Unknown]
  - Aphasia [Unknown]
